FAERS Safety Report 11445530 (Version 4)
Quarter: 2015Q4

REPORT INFORMATION
  Report Type: Spontaneous
  Country: JP (occurrence: JP)
  Receive Date: 20150902
  Receipt Date: 20151027
  Transmission Date: 20160304
  Serious: Yes (Hospitalization, Other)
  Sender: FDA-Public Use
  Company Number: JP-PFIZER INC-2015267898

PATIENT
  Age: 88 Year
  Sex: Male
  Weight: 60 kg

DRUGS (7)
  1. BERIZYM [Suspect]
     Active Substance: CELLULASE\DIASTASE\LIPASE
     Indication: PANCREATITIS CHRONIC
     Dosage: UNK, 3X/DAY
     Route: 048
     Dates: start: 20020724
  2. TEPRENONE [Suspect]
     Active Substance: TEPRENONE
     Indication: GASTRITIS
     Dosage: UNK, 3X/DAY
     Route: 048
     Dates: start: 20020724
  3. CAMOSTAT [Suspect]
     Active Substance: CAMOSTAT
     Indication: PANCREATITIS CHRONIC
     Dosage: UNK, 3X/DAY
     Route: 048
     Dates: start: 20020724
  4. RANITIDINE [Suspect]
     Active Substance: RANITIDINE\RANITIDINE HYDROCHLORIDE
     Indication: GASTRITIS
     Dosage: UNK, 1X/DAY
     Route: 048
     Dates: start: 20020724
  5. ZITHROMAC [Suspect]
     Active Substance: AZITHROMYCIN DIHYDRATE
     Indication: UPPER RESPIRATORY TRACT INFLAMMATION
     Dosage: 500 MG, 1X/DAY
     Route: 048
     Dates: start: 20150727, end: 20150729
  6. LIPITOR [Suspect]
     Active Substance: ATORVASTATIN CALCIUM
     Indication: HYPERLIPIDAEMIA
     Dosage: UNK, 1X/DAY
     Route: 048
     Dates: start: 20020724
  7. RETICOLAN [Suspect]
     Active Substance: METHYLCOBALAMIN
     Indication: IIIRD NERVE PARALYSIS
     Dosage: UNK, 3X/DAY
     Route: 048
     Dates: start: 20020724

REACTIONS (4)
  - Pyrexia [Recovered/Resolved]
  - Gastric cancer [Recovered/Resolved]
  - C-reactive protein increased [Recovering/Resolving]
  - Upper respiratory tract inflammation [Recovered/Resolved]

NARRATIVE: CASE EVENT DATE: 20150723
